FAERS Safety Report 4867063-0 (Version None)
Quarter: 2005Q4

REPORT INFORMATION
  Report Type: 
  Country: None (occurrence: None)
  Receive Date: 20051221
  Receipt Date: 20051119
  Transmission Date: 20060501
  Serious: Yes (Death)
  Sender: FDA-Public Use
  Company Number: HQWYE084819DEC05

PATIENT
  Age: 57 Year
  Sex: Female

DRUGS (4)
  1. PROPRANOLOL HYDROCHLORIDE [Suspect]
     Indication: TACHYCARDIA
     Dosage: 40 MG 1X PER 1 DAY ORAL
     Route: 048
     Dates: start: 20051117
  2. DEPAKENE [Suspect]
     Indication: EPILEPSY
     Dosage: 2 G 1X PER 1 DAY ORAL
     Route: 048
     Dates: start: 20051117
  3. RISPERDAL [Suspect]
     Indication: MENTAL DISORDER
     Dosage: ORAL
     Route: 048
     Dates: start: 20051117
  4. CLONAZEPAM [Suspect]
     Indication: EPILEPSY
     Dosage: 8 MG 1X PER 1 DAY ORAL
     Route: 048
     Dates: start: 20051117

REACTIONS (1)
  - SUDDEN DEATH [None]
